FAERS Safety Report 4883622-3 (Version None)
Quarter: 2006Q1

REPORT INFORMATION
  Report Type: 
  Country: None (occurrence: None)
  Receive Date: 20060113
  Receipt Date: 20051222
  Transmission Date: 20060701
  Serious: Yes (Hospitalization)
  Sender: FDA-Public Use
  Company Number: US200512004067

PATIENT
  Age: 68 Year
  Sex: Male

DRUGS (2)
  1. HUMULIN ULTRALENTE (HUMAN INSULIN (RDNA ORIGIN) ULTRALENTE) VIAL [Suspect]
     Indication: DIABETES MELLITUS
     Dates: start: 19930101
  2. LIPITOR [Concomitant]

REACTIONS (2)
  - CARDIAC DISORDER [None]
  - CORONARY ARTERY OCCLUSION [None]
